FAERS Safety Report 19243818 (Version 1)
Quarter: 2021Q2

REPORT INFORMATION
  Report Type: Spontaneous
  Country: PL (occurrence: PL)
  Receive Date: 20210511
  Receipt Date: 20210511
  Transmission Date: 20210717
  Serious: Yes (Other)
  Sender: FDA-Public Use
  Company Number: PL-PFIZER INC-2021472659

PATIENT
  Age: 63 Year
  Sex: Male
  Weight: 85 kg

DRUGS (2)
  1. SUTENT [Suspect]
     Active Substance: SUNITINIB MALATE
     Indication: RENAL CANCER
     Dosage: COURSE 1? 50 MG
     Route: 048
  2. SUTENT [Suspect]
     Active Substance: SUNITINIB MALATE
     Dosage: COURSE 2?6 ? 37.5 MG

REACTIONS (18)
  - Neutropenia [Unknown]
  - Leukopenia [Unknown]
  - Blood pressure increased [Unknown]
  - Decreased appetite [Unknown]
  - Anaemia [Unknown]
  - Chronic kidney disease [Unknown]
  - Haemorrhoids [Unknown]
  - Constipation [Unknown]
  - Hyperglycaemia [Unknown]
  - Alanine aminotransferase increased [Unknown]
  - Dysphonia [Unknown]
  - Thrombocytopenia [Unknown]
  - Diarrhoea [Unknown]
  - Aspartate aminotransferase increased [Unknown]
  - Palmar-plantar erythrodysaesthesia syndrome [Unknown]
  - Dehydration [Unknown]
  - Haemorrhoidal haemorrhage [Unknown]
  - Epistaxis [Unknown]
